FAERS Safety Report 7681469-6 (Version None)
Quarter: 2011Q3

REPORT INFORMATION
  Report Type: 
  Country: None (occurrence: None)
  Receive Date: 20110812
  Receipt Date: 20110804
  Transmission Date: 20111222
  Serious: Yes (Hospitalization, Other)
  Sender: FDA-Public Use
  Company Number: PHHY2011GB70324

PATIENT
  Age: 14 Year
  Sex: Female
  Weight: 79.5 kg

DRUGS (6)
  1. ATOMOXETINE HCL [Suspect]
     Indication: ATTENTION DEFICIT/HYPERACTIVITY DISORDER
     Dosage: 40 MG, UNK
     Route: 048
  2. QUETIAPINE [Suspect]
     Indication: ATTENTION DEFICIT/HYPERACTIVITY DISORDER
     Dosage: 400 MG/DAY
     Route: 048
  3. ATOMOXETINE HCL [Suspect]
     Dosage: 60 MG, UNK
     Route: 048
  4. CONCERTA [Suspect]
     Indication: ATTENTION DEFICIT/HYPERACTIVITY DISORDER
     Dosage: 36 MG, QD
     Route: 048
     Dates: start: 20110706
  5. SERTRALINE HYDROCHLORIDE [Concomitant]
  6. QUETIAPINE [Suspect]
     Dosage: 60 DF, UNK
     Route: 048

REACTIONS (2)
  - NEUROLEPTIC MALIGNANT SYNDROME [None]
  - OVERDOSE [None]
